FAERS Safety Report 4613889-8 (Version None)
Quarter: 2005Q1

REPORT INFORMATION
  Report Type: 
  Country: None (occurrence: None)
  Receive Date: 20050316
  Receipt Date: 20050308
  Transmission Date: 20050727
  Serious: Yes (Hospitalization)
  Sender: FDA-Public Use
  Company Number: 141546USA

PATIENT
  Age: 18 Month
  Sex: Female

DRUGS (1)
  1. PIMOZIDE [Suspect]

REACTIONS (11)
  - ACCIDENTAL EXPOSURE [None]
  - ACCIDENTAL OVERDOSE [None]
  - BLOOD PRESSURE DECREASED [None]
  - DROOLING [None]
  - DYSTONIA [None]
  - ELECTROCARDIOGRAM PR PROLONGATION [None]
  - HEART RATE INCREASED [None]
  - SOMNOLENCE [None]
  - TONGUE DISORDER [None]
  - TREMOR [None]
  - UNRESPONSIVE TO PAIN STIMULI [None]
